FAERS Safety Report 9228872 (Version 3)
Quarter: 2013Q2

REPORT INFORMATION
  Report Type: Spontaneous
  Country: SG (occurrence: SG)
  Receive Date: 20130412
  Receipt Date: 20130610
  Transmission Date: 20140414
  Serious: Yes (Other)
  Sender: FDA-Public Use
  Company Number: PHHY2012SG047549

PATIENT
  Sex: 0

DRUGS (4)
  1. SANDIMMUNE NEORAL [Suspect]
     Indication: PROPHYLAXIS AGAINST GRAFT VERSUS HOST DISEASE
     Route: 048
  2. MYCOPHENOLATE MOFETIL [Suspect]
     Indication: PROPHYLAXIS AGAINST GRAFT VERSUS HOST DISEASE
     Dosage: 500 MG/M2
     Route: 048
  3. METHOTREXATE [Suspect]
     Indication: PROPHYLAXIS AGAINST GRAFT VERSUS HOST DISEASE
  4. PEGFILGRASTIM [Concomitant]
     Dosage: 4 MG

REACTIONS (7)
  - Posterior reversible encephalopathy syndrome [Recovered/Resolved]
  - Status epilepticus [Recovered/Resolved]
  - Febrile neutropenia [Unknown]
  - Gastroduodenitis [Recovered/Resolved]
  - Colitis [Unknown]
  - Graft versus host disease in skin [Unknown]
  - Rash [Recovered/Resolved]
